FAERS Safety Report 6336373-2 (Version None)
Quarter: 2009Q3

REPORT INFORMATION
  Report Type: 
  Country: None (occurrence: None)
  Receive Date: 20090828
  Receipt Date: 20090821
  Transmission Date: 20100115
  Serious: Yes (Death)
  Sender: FDA-Public Use
  Company Number: ENTC2009-0284

PATIENT
  Age: 65 Year
  Sex: Female

DRUGS (1)
  1. STALEVO 100 [Suspect]
     Dosage: 100 MG (4 TABLETS) DAILY ORAL; 150 MG ORAL
     Route: 048
     Dates: start: 20071201

REACTIONS (1)
  - DEATH [None]
